FAERS Safety Report 6055714-7 (Version None)
Quarter: 2009Q1

REPORT INFORMATION
  Report Type: 
  Country: None (occurrence: None)
  Receive Date: 20090128
  Receipt Date: 20090115
  Transmission Date: 20090719
  Serious: Yes (Hospitalization)
  Sender: FDA-Public Use
  Company Number: FR-AVENTIS-200910170FR

PATIENT
  Age: 54 Year
  Sex: Female

DRUGS (20)
  1. KETEK [Suspect]
     Route: 048
     Dates: start: 20080630, end: 20080704
  2. FUNGIZONE [Suspect]
     Route: 048
     Dates: start: 20080611, end: 20080626
  3. VOLTAREN [Suspect]
     Dates: start: 20080630, end: 20080704
  4. MYFORTIC [Concomitant]
     Route: 048
     Dates: start: 20080606
  5. FLUCONAZOLE [Concomitant]
     Route: 048
     Dates: start: 20080613
  6. CYCLOSPORINE [Concomitant]
  7. FLUDARABINE [Concomitant]
  8. RADIOTHERAPY [Concomitant]
  9. HEPARIN [Concomitant]
  10. PENTACARINAT [Concomitant]
  11. ZOVIRAX [Concomitant]
  12. ZELITREX [Concomitant]
  13. BACTRIM [Concomitant]
  14. LASIX [Concomitant]
  15. ALDACTONE [Concomitant]
  16. INIPOMP                            /01263201/ [Concomitant]
  17. LAROXYL [Concomitant]
  18. TRAMADOL HCL [Concomitant]
     Dates: start: 20080630
  19. NEURONTIN [Concomitant]
     Dates: start: 20080630
  20. MIOREL [Concomitant]
     Dates: start: 20080630, end: 20080706

REACTIONS (3)
  - ACUTE PULMONARY OEDEMA [None]
  - CYTOLYTIC HEPATITIS [None]
  - MYOCARDITIS [None]
